FAERS Safety Report 7432362-5 (Version None)
Quarter: 2011Q2

REPORT INFORMATION
  Report Type: 
  Country: None (occurrence: None)
  Receive Date: 20110422
  Receipt Date: 20110412
  Transmission Date: 20111010
  Serious: Yes (Hospitalization, Other)
  Sender: FDA-Public Use
  Company Number: PHHY2010JP43578

PATIENT
  Sex: Male

DRUGS (17)
  1. URSO 250 [Concomitant]
     Dosage: 300 MG, UNK
     Route: 048
     Dates: start: 20100529, end: 20100629
  2. AFINITOR [Suspect]
     Indication: METASTATIC RENAL CELL CARCINOMA
     Dosage: 10 MG, DAILY
     Route: 048
     Dates: start: 20100524, end: 20100625
  3. PURSENNID [Concomitant]
     Dosage: UNK
     Route: 048
     Dates: start: 20100611, end: 20100629
  4. INTERFERON ALFA [Concomitant]
     Indication: METASTATIC RENAL CELL CARCINOMA
     Dosage: UNK
     Route: 042
     Dates: start: 20061001
  5. DECADRON [Concomitant]
     Indication: METASTATIC RENAL CELL CARCINOMA
     Dosage: 1 MG, UNK
     Route: 048
     Dates: start: 20100529, end: 20100625
  6. SUMIFERON [Concomitant]
     Dosage: UNK
     Route: 042
  7. SORAFENIB TOSILATE [Concomitant]
     Dosage: 400 MG, UNK
     Route: 048
     Dates: start: 20090409, end: 20100525
  8. SELBEX [Concomitant]
     Dosage: 180 MG, UNK
     Route: 048
     Dates: start: 20100529, end: 20100629
  9. AFINITOR [Suspect]
     Dosage: 10 MG DAILY
     Route: 048
     Dates: start: 20100809, end: 20100809
  10. TAKEPRON [Concomitant]
     Dosage: 15 MG, UNK
     Route: 048
     Dates: start: 20100529, end: 20100629
  11. SUMIFERON [Concomitant]
     Dosage: UNK
     Route: 042
  12. TATHION [Concomitant]
     Dosage: 300 MG, UNK
     Route: 048
     Dates: start: 20100529, end: 20100629
  13. SORAFENIB TOSILATE [Concomitant]
     Indication: METASTATIC RENAL CELL CARCINOMA
     Dosage: 400 MG, UNK
     Route: 048
     Dates: start: 20100409, end: 20100525
  14. BAKTAR [Concomitant]
     Indication: PROPHYLAXIS
     Dosage: 1 DF, UNK
     Route: 048
     Dates: start: 20090627, end: 20100629
  15. SUMIFERON [Concomitant]
     Indication: METASTATIC RENAL CELL CARCINOMA
     Dosage: UNK
     Route: 042
     Dates: start: 20061001
  16. KETOPROFEN [Concomitant]
     Indication: METASTATIC RENAL CELL CARCINOMA
     Dosage: 40 MG, UNK
     Route: 048
     Dates: start: 20100529, end: 20100629
  17. CALONAL [Concomitant]
     Indication: METASTATIC RENAL CELL CARCINOMA
     Dosage: UNK
     Route: 048
     Dates: start: 20100611, end: 20100629

REACTIONS (7)
  - INTERSTITIAL LUNG DISEASE [None]
  - COUGH [None]
  - MALAISE [None]
  - NEOPLASM MALIGNANT [None]
  - BLOOD CREATININE INCREASED [None]
  - PNEUMONITIS [None]
  - RENAL IMPAIRMENT [None]
